FAERS Safety Report 8789667 (Version 2)
Quarter: 2013Q2

REPORT INFORMATION
  Report Type: Spontaneous
  Country: US (occurrence: None)
  Receive Date: 20120905
  Receipt Date: 20130507
  Transmission Date: 20140414
  Serious: Yes (Hospitalization, Other)
  Sender: FDA-Public Use
  Company Number: ADR-2012-01620

PATIENT
  Sex: Male

DRUGS (3)
  1. BACLOFEN INTRATHECAL (BACLOFEN INJECTION) [Suspect]
     Indication: PAIN
  2. BACLOFEN INTRATHECAL (BACLOFEN INJECTION) [Suspect]
     Indication: BACK PAIN
  3. PRIALT (ZICONITIDE, SNX-111) [Concomitant]

REACTIONS (4)
  - Loss of consciousness [None]
  - Unresponsive to stimuli [None]
  - Respiratory failure [None]
  - Overdose [None]
